FAERS Safety Report 8377683-7 (Version None)
Quarter: 2012Q2

REPORT INFORMATION
  Report Type: 
  Country: None (occurrence: None)
  Receive Date: 20120522
  Receipt Date: 20120517
  Transmission Date: 20120825
  Serious: Yes (Hospitalization)
  Sender: FDA-Public Use
  Company Number: US-GLAXOSMITHKLINE-A0884653A

PATIENT
  Sex: Female
  Weight: 95.5 kg

DRUGS (5)
  1. AVANDIA [Suspect]
     Indication: DIABETES MELLITUS
     Dosage: 4MG PER DAY
     Route: 048
     Dates: start: 20020101, end: 20070608
  2. TIMOLOL MALEATE [Concomitant]
  3. NABUMETONE [Concomitant]
  4. GLYBURIDE [Concomitant]
  5. ACTOS [Concomitant]
     Dates: start: 20070608

REACTIONS (9)
  - FATIGUE [None]
  - BLINDNESS UNILATERAL [None]
  - FLUID RETENTION [None]
  - WEIGHT INCREASED [None]
  - OEDEMA [None]
  - DYSPNOEA [None]
  - MACULAR OEDEMA [None]
  - CHEST PAIN [None]
  - HYPERTENSION [None]
